FAERS Safety Report 24702098 (Version 1)
Quarter: 2024Q4

REPORT INFORMATION
  Report Type: Report from Study
  Country: CA (occurrence: CA)
  Receive Date: 20241205
  Receipt Date: 20241205
  Transmission Date: 20250114
  Serious: Yes (Hospitalization, Other)
  Sender: JOHNSON AND JOHNSON
  Company Number: CA-JNJFOC-20241103454

PATIENT
  Age: 83 Year
  Sex: Female
  Weight: 69.3 kg

DRUGS (2)
  1. REMICADE [Suspect]
     Active Substance: INFLIXIMAB
     Indication: Colitis ulcerative
     Route: 041
     Dates: start: 20240725
  2. REMICADE [Suspect]
     Active Substance: INFLIXIMAB
     Dosage: LAST DOSE 22-NOV-2024
     Route: 041
     Dates: start: 20240725

REACTIONS (9)
  - Confusional state [Recovered/Resolved]
  - Neoplasm malignant [Unknown]
  - Pneumonia [Unknown]
  - Appendicitis perforated [Unknown]
  - Abdominal infection [Recovering/Resolving]
  - Fall [Unknown]
  - Asthenia [Unknown]
  - White blood cell count increased [Unknown]
  - Off label use [Unknown]

NARRATIVE: CASE EVENT DATE: 20241118
